FAERS Safety Report 9586477 (Version 3)
Quarter: 2013Q4

REPORT INFORMATION
  Report Type: Report from Study
  Country: US (occurrence: US)
  Receive Date: 20131003
  Receipt Date: 20131210
  Transmission Date: 20140711
  Serious: Yes (Other)
  Sender: FDA-Public Use
  Company Number: PHEH2013US020406

PATIENT
  Sex: Female

DRUGS (1)
  1. TOBI [Suspect]
     Indication: LUNG DISORDER
     Dosage: 300 MG, BID
     Dates: start: 20130529, end: 20130703

REACTIONS (1)
  - Tracheal haemorrhage [Unknown]
